FAERS Safety Report 19844776 (Version 2)
Quarter: 2021Q3

REPORT INFORMATION
  Report Type: Spontaneous
  Country: CN (occurrence: CN)
  Receive Date: 20210916
  Receipt Date: 20210920
  Transmission Date: 20211014
  Serious: Yes (Hospitalization, Other)
  Sender: FDA-Public Use
  Company Number: CN-009507513-2109CHN003745

PATIENT
  Age: 40 Year
  Sex: Male
  Weight: 63 kg

DRUGS (4)
  1. KEYTRUDA [Suspect]
     Active Substance: PEMBROLIZUMAB
     Indication: IMMUNOMODULATORY THERAPY
     Dosage: DOSE: 200 MG, FREQUENCY: ONCE
     Route: 041
     Dates: start: 20210610, end: 20210610
  2. OSIMERTINIB MESILATE [Suspect]
     Active Substance: OSIMERTINIB
     Indication: IMMUNOMODULATORY THERAPY
     Dosage: DOSE: 80 MG, FREQUENCY: ONCE DAILY (QD)
     Route: 048
     Dates: start: 20210622, end: 20210731
  3. CARBOPLATIN. [Suspect]
     Active Substance: CARBOPLATIN
     Indication: CHEMOTHERAPY
     Dosage: 0 MILLIGRAM, ONCE
     Route: 041
     Dates: start: 20210610, end: 20210610
  4. PEMETREXED DISODIUM [Suspect]
     Active Substance: PEMETREXED DISODIUM
     Indication: CHEMOTHERAPY
     Dosage: 0 GRAM, ONCE
     Route: 041
     Dates: start: 20210610, end: 20210610

REACTIONS (6)
  - Immune-mediated hepatic disorder [Unknown]
  - Lung neoplasm malignant [Unknown]
  - Hepatitis B core antibody positive [Unknown]
  - Hepatitis B surface antibody positive [Unknown]
  - Autoimmune hepatitis [Recovering/Resolving]
  - Hepatitis B e antibody positive [Unknown]

NARRATIVE: CASE EVENT DATE: 2021
